FAERS Safety Report 8070592-2 (Version None)
Quarter: 2012Q1

REPORT INFORMATION
  Report Type: 
  Country: None (occurrence: None)
  Receive Date: 20120125
  Receipt Date: 20120119
  Transmission Date: 20120608
  Serious: Yes (Hospitalization)
  Sender: FDA-Public Use
  Company Number: PHEH2012US001764

PATIENT
  Age: 92 Year
  Sex: Female

DRUGS (1)
  1. DIOVAN [Suspect]
     Route: 048

REACTIONS (3)
  - DIABETES MELLITUS [None]
  - FRUSTRATION [None]
  - CARDIAC DISORDER [None]
